FAERS Safety Report 4967187-3 (Version None)
Quarter: 2006Q2

REPORT INFORMATION
  Report Type: 
  Country: None (occurrence: None)
  Receive Date: 20060410
  Receipt Date: 20060330
  Transmission Date: 20061013
  Serious: Yes (Death, Life-Threatening)
  Sender: FDA-Public Use
  Company Number: 2006CG00610

PATIENT
  Age: 81 Year
  Sex: Female

DRUGS (11)
  1. MOPRAL [Suspect]
     Indication: OESOPHAGITIS
     Route: 048
     Dates: start: 20051217, end: 20060111
  2. DOLIPRANE [Suspect]
     Indication: ARTHROPATHY
     Route: 048
     Dates: start: 20051217, end: 20060103
  3. LASILIX [Suspect]
     Indication: ISCHAEMIC CARDIOMYOPATHY
     Route: 048
     Dates: end: 20060103
  4. LASILIX [Suspect]
     Route: 051
     Dates: start: 20060104, end: 20060127
  5. ROCEPHIN [Suspect]
     Route: 048
     Dates: start: 20051217, end: 20060102
  6. VANCOMYCIN [Suspect]
     Route: 042
     Dates: start: 20051222, end: 20060102
  7. FLAGYL [Suspect]
     Route: 048
     Dates: start: 20051217, end: 20060103
  8. CORDARONE [Suspect]
     Indication: ATRIAL FLUTTER
     Dates: start: 20051217, end: 20060103
  9. DIFFU K [Suspect]
     Dates: end: 20060110
  10. IMOVANE [Suspect]
     Dates: start: 20051219, end: 20060102
  11. RIVOTRIL [Suspect]
     Dates: start: 20051218, end: 20051230

REACTIONS (4)
  - CARDIOGENIC SHOCK [None]
  - PERIRECTAL ABSCESS [None]
  - SEPTIC SHOCK [None]
  - THROMBOCYTOPENIA [None]
